FAERS Safety Report 8093782-1 (Version None)
Quarter: 2012Q1

REPORT INFORMATION
  Report Type: 
  Country: None (occurrence: None)
  Receive Date: 20120125
  Receipt Date: 20120119
  Transmission Date: 20120608
  Serious: Yes (Hospitalization, Other)
  Sender: FDA-Public Use
  Company Number: 1000023384

PATIENT
  Age: 77 Year
  Sex: Male
  Weight: 77.79 kg

DRUGS (14)
  1. ASPIRIN [Concomitant]
  2. DALIRESP [Suspect]
     Indication: CHRONIC OBSTRUCTIVE PULMONARY DISEASE
     Dosage: 500 MCG (500 MCG, 1 IN 1 D), ORAL, 2500 MCG (500 MCG, 5 IN 1 D), ORAL
     Route: 048
     Dates: start: 20110813, end: 20110813
  3. DALIRESP [Suspect]
     Indication: CHRONIC OBSTRUCTIVE PULMONARY DISEASE
     Dosage: 500 MCG (500 MCG, 1 IN 1 D), ORAL, 2500 MCG (500 MCG, 5 IN 1 D), ORAL
     Route: 048
     Dates: end: 20110814
  4. SPIRIVA (TIOTROPIUM BROMIDE) (TIOTROPIUM BROMIDE) [Concomitant]
  5. PLAVIX (CLOPIDOGREL BISULFATE) (CLOPIDOGREL BISULFATE) [Concomitant]
  6. EXELON (RIVASTIGMINE) (RIVASTIGMINE) [Concomitant]
  7. LEXAPRO (ESCITALOPRAM OXALATE) (ESCITALOPRAM OXALATE) [Concomitant]
  8. NAMENDA [Concomitant]
  9. ADVAIR (FLUTICASONE, SALMETEROL) (FLUTICASONE, SALMETEROL) [Concomitant]
  10. VALSARTAN (VALSARTAN) (VALSARTAN) [Concomitant]
  11. LIPITOR [Concomitant]
  12. MICARDIS [Concomitant]
  13. UROXATRAL (ALFUZOSIN HYDROCHLORIDE) (ALFUZOSIN HYDROCHLORIDE) [Concomitant]
  14. CARDIZEM [Concomitant]

REACTIONS (6)
  - CEREBROVASCULAR DISORDER [None]
  - ACCIDENTAL OVERDOSE [None]
  - CHEST PAIN [None]
  - CEREBRAL ATROPHY [None]
  - ORTHOSTATIC HYPOTENSION [None]
  - ABDOMINAL PAIN [None]
